FAERS Safety Report 24868873 (Version 2)
Quarter: 2025Q1

REPORT INFORMATION
  Report Type: Spontaneous
  Country: US (occurrence: US)
  Receive Date: 20250121
  Receipt Date: 20250206
  Transmission Date: 20250408
  Serious: Yes (Other)
  Sender: UCB
  Company Number: US-UCBSA-2025002807

PATIENT
  Sex: Male

DRUGS (1)
  1. RYSTIGGO [Suspect]
     Active Substance: ROZANOLIXIZUMAB-NOLI
     Indication: Myasthenia gravis
     Dosage: 560 MILLIGRAM, WEEKLY (QW)
     Route: 058
     Dates: start: 202407

REACTIONS (1)
  - Myasthenia gravis crisis [Recovering/Resolving]
